FAERS Safety Report 9710526 (Version 1)
Quarter: 2013Q4

REPORT INFORMATION
  Report Type: Spontaneous
  Country: US (occurrence: US)
  Receive Date: 20131126
  Receipt Date: 20131126
  Transmission Date: 20140711
  Serious: No
  Sender: FDA-Public Use
  Company Number: US-BRISTOL-MYERS SQUIBB COMPANY-18858308

PATIENT
  Age: 69 Year
  Sex: Female
  Weight: 120.18 kg

DRUGS (2)
  1. BYETTA [Suspect]
     Indication: TYPE 2 DIABETES MELLITUS
     Dosage: 10 MCG BID ABT 2 MONTHS.
  2. BYDUREON [Suspect]

REACTIONS (2)
  - Hyperthyroidism [Unknown]
  - Goitre [Unknown]
